FAERS Safety Report 15701871 (Version 1)
Quarter: 2018Q4

REPORT INFORMATION
  Report Type: Spontaneous
  Country: US (occurrence: US)
  Receive Date: 20181208
  Receipt Date: 20181208
  Transmission Date: 20190205
  Serious: No
  Sender: FDA-Public Use
  Company Number: US-JNJFOC-20181125310

PATIENT
  Age: 7 Decade
  Sex: Female

DRUGS (6)
  1. TOPAMAX [Concomitant]
     Active Substance: TOPIRAMATE
     Indication: MIGRAINE
     Dosage: DAILY
     Route: 065
  2. BOTOX [Concomitant]
     Active Substance: ONABOTULINUMTOXINA
     Indication: PRODUCT USED FOR UNKNOWN INDICATION
     Route: 065
  3. MENS ROGAINE EXTRA STRENGTH UNSCENTED [Suspect]
     Active Substance: MINOXIDIL
     Route: 061
  4. RIZATRIPTAN. [Concomitant]
     Active Substance: RIZATRIPTAN
     Indication: MIGRAINE
     Dosage: AS NEEDED
     Route: 065
  5. LEVOTHYROXINE. [Concomitant]
     Active Substance: LEVOTHYROXINE
     Indication: HYPOTHYROIDISM
     Dosage: DAILY
     Route: 065
  6. MENS ROGAINE EXTRA STRENGTH UNSCENTED [Suspect]
     Active Substance: MINOXIDIL
     Indication: ALOPECIA
     Dosage: 1/2 CAPFUL ONCE EVERY OTHER DAY
     Route: 061

REACTIONS (3)
  - Product use issue [Unknown]
  - Alopecia [Not Recovered/Not Resolved]
  - Intentional product misuse [Unknown]
